FAERS Safety Report 18272194 (Version 1)
Quarter: 2020Q3

REPORT INFORMATION
  Report Type: Spontaneous
  Country: PK (occurrence: PK)
  Receive Date: 20200916
  Receipt Date: 20200916
  Transmission Date: 20201103
  Serious: Yes (Death)
  Sender: FDA-Public Use
  Company Number: PK-ROCHE-2678332

PATIENT
  Age: 71 Year
  Sex: Male

DRUGS (1)
  1. RISTOVA [Suspect]
     Active Substance: RITUXIMAB
     Indication: DIFFUSE LARGE B-CELL LYMPHOMA
     Dosage: FOR 8 CYCLES.
     Route: 042
     Dates: start: 20200422, end: 20200422

REACTIONS (1)
  - Death [Fatal]

NARRATIVE: CASE EVENT DATE: 20200505
